FAERS Safety Report 18319507 (Version 1)
Quarter: 2020Q3

REPORT INFORMATION
  Report Type: Spontaneous
  Country: ES (occurrence: ES)
  Receive Date: 20200928
  Receipt Date: 20200928
  Transmission Date: 20201103
  Serious: Yes (Life-Threatening, Hospitalization, Other)
  Sender: FDA-Public Use
  Company Number: NVSC2020ES261754

PATIENT
  Age: 32 Year
  Sex: Female

DRUGS (1)
  1. MOXIFLOXACIN. [Suspect]
     Active Substance: MOXIFLOXACIN
     Indication: ATYPICAL PNEUMONIA
     Dosage: 400 MG, QD
     Route: 048

REACTIONS (6)
  - Pneumonia [Unknown]
  - Influenza B virus test positive [Unknown]
  - Conjunctival hyperaemia [Unknown]
  - Iris transillumination defect [Unknown]
  - Acute respiratory distress syndrome [Unknown]
  - Miosis [Unknown]
